FAERS Safety Report 19615818 (Version 3)
Quarter: 2021Q3

REPORT INFORMATION
  Report Type: Report from Study
  Country: US (occurrence: US)
  Receive Date: 20210727
  Receipt Date: 20210820
  Transmission Date: 20211014
  Serious: Yes (Hospitalization, Other)
  Sender: FDA-Public Use
  Company Number: US-TAKEDA-US201940912

PATIENT
  Sex: Female

DRUGS (1)
  1. HUMAN NORMAL IMMUNOGLOBULIN; LIQUID [Suspect]
     Active Substance: HUMAN IMMUNOGLOBULIN G
     Indication: IMMUNODEFICIENCY COMMON VARIABLE
     Dosage: 30 GRAM, 1X A MONTH
     Route: 042
     Dates: start: 20191206

REACTIONS (9)
  - Respiratory tract infection [Recovering/Resolving]
  - COVID-19 pneumonia [Unknown]
  - Blood pressure decreased [Unknown]
  - Colectomy [Unknown]
  - Headache [Unknown]
  - Influenza [Unknown]
  - Malaise [Unknown]
  - Blood immunoglobulin G decreased [Unknown]
  - Nausea [Unknown]
